FAERS Safety Report 24155349 (Version 1)
Quarter: 2024Q3

REPORT INFORMATION
  Report Type: Spontaneous
  Country: US (occurrence: None)
  Receive Date: 20240731
  Receipt Date: 20240731
  Transmission Date: 20241017
  Serious: No
  Sender: Alvotech
  Company Number: US-ALVOTECHPMS-2024-ALVOTECHPMS-002053

PATIENT
  Age: 42 Year
  Sex: Female
  Weight: 77.11 kg

DRUGS (3)
  1. SIMLANDI [Suspect]
     Active Substance: ADALIMUMAB-RYVK
     Indication: Crohn^s disease
     Dosage: 40 MG EVERY OTHER WEEK
     Route: 065
     Dates: start: 20240717
  2. CLOBETASOL [Concomitant]
     Active Substance: CLOBETASOL
  3. SIMLANDI [Suspect]
     Active Substance: ADALIMUMAB-RYVK
     Indication: Psoriasis
     Dosage: 40 MG EVERY OTHER WEEK
     Route: 065
     Dates: start: 20240717

REACTIONS (2)
  - Arthralgia [Unknown]
  - Injection site erythema [Unknown]

NARRATIVE: CASE EVENT DATE: 20240718
